FAERS Safety Report 4416102-X (Version None)
Quarter: 2004Q3

REPORT INFORMATION
  Report Type: 
  Country: None (occurrence: None)
  Receive Date: 20040730
  Receipt Date: 20040722
  Transmission Date: 20050211
  Serious: Yes (Other)
  Sender: FDA-Public Use
  Company Number: 2004224747FR

PATIENT
  Sex: Male

DRUGS (2)
  1. FRAGMIN [Suspect]
     Indication: PROPHYLAXIS
     Dosage: BID, SUBCUTANEOUS
     Route: 058
     Dates: start: 20040601, end: 20040701
  2. FLUINDIONE (FLUINDIONE) [Concomitant]

REACTIONS (2)
  - DRUG INEFFECTIVE [None]
  - PHLEBITIS [None]
